FAERS Safety Report 19378680 (Version 1)
Quarter: 2021Q2

REPORT INFORMATION
  Report Type: Spontaneous
  Country: SE (occurrence: SE)
  Receive Date: 20210606
  Receipt Date: 20210606
  Transmission Date: 20210717
  Serious: Yes (Disabling)
  Sender: FDA-Public Use
  Company Number: SE-TEVA-2021-SE-1918445

PATIENT
  Age: 61 Year
  Sex: Female
  Weight: 102 kg

DRUGS (1)
  1. AIROMIR [Suspect]
     Active Substance: ALBUTEROL SULFATE
     Indication: PULMONARY FUNCTION TEST
     Dosage: 8 TIMES
     Route: 065
     Dates: start: 20210419, end: 20210419

REACTIONS (10)
  - Bronchitis [Not Recovered/Not Resolved]
  - Taste disorder [Recovering/Resolving]
  - Atrial fibrillation [Recovering/Resolving]
  - Dyspnoea exertional [Recovering/Resolving]
  - Condition aggravated [Not Recovered/Not Resolved]
  - Dyspnoea [Recovering/Resolving]
  - Pulmonary pain [Recovering/Resolving]
  - Chest pain [Recovering/Resolving]
  - Productive cough [Not Recovered/Not Resolved]
  - Burn oral cavity [Recovering/Resolving]

NARRATIVE: CASE EVENT DATE: 20210419
